FAERS Safety Report 5909771-6 (Version None)
Quarter: 2008Q4

REPORT INFORMATION
  Report Type: 
  Country: None (occurrence: None)
  Receive Date: 20081003
  Receipt Date: 20081003
  Transmission Date: 20090506
  Serious: Yes (Other)
  Sender: FDA-Public Use
  Company Number: None

PATIENT

DRUGS (1)
  1. CIPROFLOXACIN HCL [Suspect]
     Indication: URINARY TRACT INFECTION
     Dosage: 500 MG 2 X DAY 14 TABS
     Dates: start: 20080214

REACTIONS (3)
  - FATIGUE [None]
  - IMPAIRED DRIVING ABILITY [None]
  - PAIN IN EXTREMITY [None]
